FAERS Safety Report 4532002-9 (Version None)
Quarter: 2004Q4

REPORT INFORMATION
  Report Type: 
  Country: None (occurrence: None)
  Receive Date: 20041217
  Receipt Date: 20041213
  Transmission Date: 20050328
  Serious: Yes (Hospitalization)
  Sender: FDA-Public Use
  Company Number: 2004-11-0915

PATIENT
  Age: 47 Year
  Sex: Male
  Weight: 67 kg

DRUGS (6)
  1. PEG-INTERFERON INJECTABLE [Suspect]
     Indication: HEPATITIS C
  2. RIBAVIRIN [Suspect]
     Indication: HEPATITIS C
     Dosage: ORAL
     Route: 048
  3. ABACAVIR [Concomitant]
  4. EFAVIRENZ [Concomitant]
  5. TENOFOVIR (PMPA) [Concomitant]
  6. TESTOSTERONE TOPICAL FOR WEIGHT GAIN [Concomitant]

REACTIONS (4)
  - APLASIA PURE RED CELL [None]
  - BLOOD IRON INCREASED [None]
  - BONE MARROW DEPRESSION [None]
  - DRUG INTERACTION [None]
